FAERS Safety Report 21857263 (Version 2)
Quarter: 2023Q1

REPORT INFORMATION
  Report Type: Report from Study
  Country: US (occurrence: US)
  Receive Date: 20230113
  Receipt Date: 20230322
  Transmission Date: 20230417
  Serious: No
  Sender: FDA-Public Use
  Company Number: US-ABBVIE-4266469

PATIENT
  Age: 41 Year
  Sex: Female
  Weight: 83.914 kg

DRUGS (2)
  1. ORILISSA [Suspect]
     Active Substance: ELAGOLIX SODIUM
     Indication: Myomectomy
     Route: 048
     Dates: start: 202211, end: 202212
  2. ORILISSA [Suspect]
     Active Substance: ELAGOLIX SODIUM
     Indication: Myomectomy
     Route: 048
     Dates: start: 202204, end: 202210

REACTIONS (1)
  - Off label use [Not Recovered/Not Resolved]

NARRATIVE: CASE EVENT DATE: 20220401
